FAERS Safety Report 25048034 (Version 4)
Quarter: 2025Q2

REPORT INFORMATION
  Report Type: Spontaneous
  Country: DE (occurrence: DE)
  Receive Date: 20250306
  Receipt Date: 20250526
  Transmission Date: 20250717
  Serious: Yes (Hospitalization, Other)
  Sender: ORGANON
  Company Number: None

PATIENT
  Age: 26 Year
  Sex: Female

DRUGS (18)
  1. ESTRADIOL [Suspect]
     Active Substance: ESTRADIOL
     Indication: Assisted reproductive technology
     Dosage: (16 MILLIGRAM(S), 1 IN 1 DAY)
     Route: 065
     Dates: start: 20250122, end: 20250123
  2. GANIRELIX ACETATE [Suspect]
     Active Substance: GANIRELIX ACETATE
     Indication: Assisted reproductive technology
     Dosage: 0.25 MG, DAILY
     Route: 065
     Dates: start: 20250114, end: 20250119
  3. GONAL-F [Suspect]
     Active Substance: FOLLITROPIN
     Indication: Assisted reproductive technology
     Dosage: 150.0 INTERNATIONAL UNIT(S) (150 INTERNATIONAL UNIT(S), 1 IN 1 DAY)
     Route: 065
     Dates: start: 20250109, end: 20250113
  4. GONAL-F [Suspect]
     Active Substance: FOLLITROPIN
     Dosage: 200.0 INTERNATIONAL UNIT(S) (200 INTERNATIONAL UNIT(S), 1 IN 1 DAY) (200 INTERNATIONAL UNIT, DAILY)
     Route: 065
     Dates: start: 20250114, end: 20250119
  5. GONAL-F [Suspect]
     Active Substance: FOLLITROPIN
     Dosage: 150.0 INTERNATIONAL UNIT(S) (150 INTERNATIONAL UNIT(S), 1 IN 1 DAY) (150 INTERNATIONAL UNIT, DAILY)
     Route: 065
     Dates: start: 20250120, end: 20250120
  6. TRIPTORELIN ACETATE [Suspect]
     Active Substance: TRIPTORELIN ACETATE
     Indication: Assisted reproductive technology
     Dosage: 0.2 MG, ONCE/SINGLE
     Route: 065
     Dates: start: 20250120, end: 20250120
  7. PROGESTERONE [Suspect]
     Active Substance: PROGESTERONE
     Indication: Assisted reproductive technology
     Dosage: 800.0 MILLIGRAM(S) (800 MILLIGRAM(S), 1 IN 1 DAY)
     Route: 065
     Dates: start: 20250122, end: 20250123
  8. PROGESTERONE [Suspect]
     Active Substance: PROGESTERONE
     Dosage: 1200 MILLIGRAM(S) (1200 MILLIGRAM(S), 1 IN 1 DAY)
     Route: 065
     Dates: start: 20250124, end: 20250209
  9. PROGESTERONE [Suspect]
     Active Substance: PROGESTERONE
     Dosage: 400 MG, 3 TIMES DAILY
     Route: 067
     Dates: start: 20250124, end: 20250209
  10. DUPHASTON [Suspect]
     Active Substance: DYDROGESTERONE
     Indication: Assisted reproductive technology
     Dosage: 30.0 MILLIGRAM(S) (30 MILLIGRAM(S), 1 IN 1 DAY)
     Route: 065
     Dates: start: 20250122, end: 20250209
  11. ESTRADIOL [Suspect]
     Active Substance: ESTRADIOL
     Indication: Assisted reproductive technology
     Dosage: 20.0 MILLIGRAM(S) (20 MILLIGRAM(S), 1 IN 1 DAY)
     Route: 065
     Dates: start: 20250124, end: 20250209
  12. ESTRADIOL [Suspect]
     Active Substance: ESTRADIOL
     Dosage: 4 MG, 2 TIMES DAILY
     Route: 048
     Dates: start: 20250124, end: 20250209
  13. ESTRADIOL [Suspect]
     Active Substance: ESTRADIOL
     Dosage: 6 MG, 2 TIMES DAILY
     Route: 067
     Dates: start: 20250124, end: 20250209
  14. GONADOTROPHIN, CHORIONIC [Suspect]
     Active Substance: GONADOTROPHIN, CHORIONIC
     Indication: Assisted reproductive technology
     Dosage: 750.0 INTERNATIONAL UNIT(S) (750 INTERNATIONAL UNIT(S), 1 IN 1 DAY) (POWDER AND SOLVENT FOR SOLUTION
     Route: 065
     Dates: start: 20250122, end: 20250122
  15. GONADOTROPHIN, CHORIONIC [Suspect]
     Active Substance: GONADOTROPHIN, CHORIONIC
     Dosage: 375 INTERNATIONAL UNIT, DAILY (POWDER AND SOLVENT FOR SOLUTION FOR INJECTION) (POWDER AND SOLVENT FO
     Route: 065
     Dates: start: 20250124, end: 20250124
  16. GONADOTROPHIN, CHORIONIC [Suspect]
     Active Substance: GONADOTROPHIN, CHORIONIC
     Dosage: 750.0 INTERNATIONAL UNIT(S) (750 INTERNATIONAL UNIT(S), 1 IN 1 DAY) (POWDER AND SOLVENT FOR SOLUTION
     Route: 065
     Dates: start: 20250127, end: 20250127
  17. GONADOTROPHIN, CHORIONIC [Suspect]
     Active Substance: GONADOTROPHIN, CHORIONIC
     Dosage: 375 INTERNATIONAL UNIT, DAILY (POWDER AND SOLVENT FOR SOLUTION FOR INJECTION) (POWDER AND SOLVENT FO
     Route: 065
     Dates: start: 20250127, end: 20250127
  18. ASPIRIN [Suspect]
     Active Substance: ASPIRIN
     Indication: Assisted reproductive technology
     Dosage: 150.0 MILLIGRAM(S) (150 MILLIGRAM(S), 1 IN 1 DAY)
     Route: 065
     Dates: start: 20250124, end: 20250209

REACTIONS (9)
  - Ovarian hyperstimulation syndrome [Recovered/Resolved]
  - Abdominal wall disorder [Recovered/Resolved]
  - Abdominal tenderness [Recovered/Resolved]
  - Dyspnoea [Recovered/Resolved]
  - Thrombophlebitis [Recovered/Resolved]
  - Vomiting [Recovered/Resolved]
  - Nausea [Recovered/Resolved]
  - Underdose [Recovered/Resolved]
  - Product use issue [Recovered/Resolved]

NARRATIVE: CASE EVENT DATE: 20250122
